FAERS Safety Report 9659677 (Version 1)
Quarter: 2013Q4

REPORT INFORMATION
  Report Type: Spontaneous
  Country: FR (occurrence: FR)
  Receive Date: 20131031
  Receipt Date: 20131031
  Transmission Date: 20140711
  Serious: Yes (Disabling)
  Sender: FDA-Public Use
  Company Number: FR-JNJFOC-20131015405

PATIENT
  Age: 61 Year
  Sex: Female

DRUGS (2)
  1. REMICADE [Suspect]
     Indication: PSORIASIS
     Route: 042
     Dates: start: 20070228
  2. REMICADE [Suspect]
     Indication: PSORIASIS
     Dosage: 40TH INFUSION
     Route: 042

REACTIONS (3)
  - Commotio retinae [Recovered/Resolved with Sequelae]
  - Eye excision [Recovered/Resolved with Sequelae]
  - Retinal detachment [Unknown]
